FAERS Safety Report 4508615-7 (Version None)
Quarter: 2004Q4

REPORT INFORMATION
  Report Type: 
  Country: None (occurrence: None)
  Receive Date: 20041123
  Receipt Date: 20040429
  Transmission Date: 20050328
  Serious: No
  Sender: FDA-Public Use
  Company Number: US-GLAXOSMITHKLINE-A0508978A

PATIENT
  Sex: Male

DRUGS (5)
  1. WELLBUTRIN SR [Suspect]
     Indication: DEPRESSION
     Dosage: 100MG FIVE TIMES PER DAY
     Route: 048
  2. CORDARONE [Concomitant]
  3. ATIVAN [Concomitant]
  4. NEURONTIN [Concomitant]
  5. COUMADIN [Concomitant]

REACTIONS (2)
  - MIGRAINE [None]
  - OVERDOSE [None]
